FAERS Safety Report 7549322-6 (Version None)
Quarter: 2011Q2

REPORT INFORMATION
  Report Type: 
  Country: None (occurrence: None)
  Receive Date: 20110615
  Receipt Date: 20010423
  Transmission Date: 20111010
  Serious: Yes (Death)
  Sender: FDA-Public Use
  Company Number: PHBS2001CA04104

PATIENT
  Sex: Male

DRUGS (2)
  1. CLOZAPINE [Suspect]
     Indication: SCHIZOPHRENIA, PARANOID TYPE
     Route: 048
     Dates: start: 20000316
  2. TOPAMAX [Suspect]
     Indication: OBESITY

REACTIONS (3)
  - MYOCARDIAL INFARCTION [None]
  - VOMITING [None]
  - NAUSEA [None]
